FAERS Safety Report 7876967-6 (Version None)
Quarter: 2011Q4

REPORT INFORMATION
  Report Type: 
  Country: None (occurrence: None)
  Receive Date: 20111031
  Receipt Date: 20111020
  Transmission Date: 20120403
  Serious: Yes (Hospitalization)
  Sender: FDA-Public Use
  Company Number: PHHY2011JP83766

PATIENT
  Age: 26 Year
  Sex: Female

DRUGS (8)
  1. METHYLPREDNISOLONE [Suspect]
     Dosage: 250 MG/DAY
  2. INTERFERON BETA NOS [Concomitant]
     Dosage: 300000 U/DAY (3.0 X 10^6 UNITS/DAY)
  3. METHYLPREDNISOLONE [Suspect]
     Dosage: 750 MG/DAY
  4. METHYLPREDNISOLONE [Suspect]
     Dosage: 500 MG/DAY
  5. CYCLOSPORINE [Concomitant]
     Dosage: 25 MG/DAY
  6. METHYLPREDNISOLONE [Suspect]
     Indication: HEPATITIS B
     Dosage: 1000 MG/DAY
  7. CYCLOSPORINE [Concomitant]
     Dosage: 12.5 MG/DAY
  8. ENTECAVIR [Concomitant]
     Dosage: 0.5 MG, UNK

REACTIONS (1)
  - PNEUMATOSIS INTESTINALIS [None]
